FAERS Safety Report 6793591-7 (Version None)
Quarter: 2010Q2

REPORT INFORMATION
  Report Type: 
  Country: None (occurrence: None)
  Receive Date: 20100624
  Receipt Date: 20090115
  Transmission Date: 20101027
  Serious: No
  Sender: FDA-Public Use
  Company Number: US-PFIZER INC-2008098529

PATIENT
  Sex: Female
  Weight: 49.09 kg

DRUGS (6)
  1. XALATAN [Suspect]
     Indication: INTRAOCULAR PRESSURE TEST
     Dates: start: 20081001
  2. XALATAN [Suspect]
     Indication: GLAUCOMA
  3. XAL-EASE [Suspect]
  4. ETHAMBUTOL HYDROCHLORIDE [Concomitant]
     Indication: MYCOPLASMA INFECTION
  5. RIFABUTIN [Concomitant]
     Indication: MYCOPLASMA INFECTION
  6. AZITHROMYCIN [Concomitant]
     Indication: MYCOPLASMA INFECTION

REACTIONS (2)
  - EYE IRRITATION [None]
  - MEDICAL DEVICE COMPLICATION [None]
